FAERS Safety Report 5685181-4 (Version None)
Quarter: 2008Q1

REPORT INFORMATION
  Report Type: 
  Country: None (occurrence: None)
  Receive Date: 20080328
  Receipt Date: 20080317
  Transmission Date: 20080703
  Serious: Yes (Life-Threatening)
  Sender: FDA-Public Use
  Company Number: GB-ELI_LILLY_AND_COMPANY-GB200803004390

PATIENT
  Age: 45 Year
  Sex: Male
  Weight: 102 kg

DRUGS (3)
  1. FLUOXETINE [Suspect]
     Dosage: 20 MG, UNK
     Dates: start: 20080218, end: 20080227
  2. DICLOFENAC SODIUM [Concomitant]
     Dosage: UNK, AS NEEDED
     Dates: start: 20080204, end: 20080224
  3. FLUCLOXACILLIN [Concomitant]
     Dosage: 250 MG, 4/D
     Dates: start: 20080218

REACTIONS (3)
  - ANXIETY [None]
  - FEELING ABNORMAL [None]
  - SUICIDAL IDEATION [None]
